FAERS Safety Report 12837176 (Version 1)
Quarter: 2016Q4

REPORT INFORMATION
  Report Type: Spontaneous
  Country: US (occurrence: US)
  Receive Date: 20161007
  Receipt Date: 20161007
  Transmission Date: 20170207
  Serious: Yes (Hospitalization)
  Sender: FDA-Public Use
  Company Number: None

PATIENT
  Age: 25 Year
  Sex: Male
  Weight: 64.9 kg

DRUGS (1)
  1. EMPAGLIFLOZIN [Suspect]
     Active Substance: EMPAGLIFLOZIN

REACTIONS (5)
  - Pain [None]
  - Hyperhidrosis [None]
  - Dysphagia [None]
  - Diabetic ketoacidosis [None]
  - Fatigue [None]

NARRATIVE: CASE EVENT DATE: 20160804
